FAERS Safety Report 12945696 (Version 1)
Quarter: 2016Q4

REPORT INFORMATION
  Report Type: Spontaneous
  Country: GB (occurrence: GB)
  Receive Date: 20161116
  Receipt Date: 20161116
  Transmission Date: 20170207
  Serious: Yes (Other)
  Sender: FDA-Public Use
  Company Number: GB-BAUSCH-BL-2016-027721

PATIENT
  Age: 18 Year
  Sex: Female

DRUGS (1)
  1. TARGAXAN [Suspect]
     Active Substance: RIFAXIMIN
     Indication: IRRITABLE BOWEL SYNDROME
     Route: 048

REACTIONS (2)
  - Product use issue [Recovered/Resolved]
  - Haemorrhage [Recovered/Resolved]
